FAERS Safety Report 25282368 (Version 8)
Quarter: 2025Q4

REPORT INFORMATION
  Report Type: Spontaneous
  Country: EU (occurrence: EU)
  Receive Date: 20250508
  Receipt Date: 20251105
  Transmission Date: 20260117
  Serious: Yes (Other)
  Sender: AUROBINDO
  Company Number: EU-JNJFOC-20250258376

PATIENT
  Age: 77 Year
  Sex: Male
  Weight: 75 kg

DRUGS (31)
  1. LOPERAMIDE [Suspect]
     Active Substance: LOPERAMIDE
     Indication: Diarrhoea
     Dosage: UNK
     Route: 065
  2. CANDESARTAN [Suspect]
     Active Substance: CANDESARTAN
     Indication: Product used for unknown indication
     Dosage: UNK
     Route: 065
  3. UPTRAVI [Suspect]
     Active Substance: SELEXIPAG
     Indication: Pulmonary arterial hypertension
     Dosage: 600 MICROGRAM, TWO TIMES A DAY  (START DATE- 01-FEB-2025)
     Route: 048
     Dates: start: 20250215
  4. UPTRAVI [Suspect]
     Active Substance: SELEXIPAG
     Dosage: 600 MICROGRAM, TWO TIMES A DAY ( (START DATE: 15-FEB-2025))
     Route: 048
  5. UPTRAVI [Suspect]
     Active Substance: SELEXIPAG
     Dosage: 1000 MICROGRAM, TWO TIMES A DAY
     Route: 048
     Dates: start: 20250102
  6. UPTRAVI [Suspect]
     Active Substance: SELEXIPAG
     Dosage: 1200 MICROGRAM, TWO TIMES A DAY
     Route: 048
     Dates: start: 20250102
  7. UPTRAVI [Suspect]
     Active Substance: SELEXIPAG
     Dosage: 800 MICROGRAM, TWO TIMES A DAY
     Route: 048
     Dates: start: 20250222
  8. UPTRAVI [Suspect]
     Active Substance: SELEXIPAG
     Dosage: 1400 MICROGRAM, TWO TIMES A DAY
     Route: 048
     Dates: start: 20250102
  9. UPTRAVI [Suspect]
     Active Substance: SELEXIPAG
     Dosage: 1000 MICROGRAM, TWO TIMES A DAY
     Route: 048
     Dates: start: 20250301
  10. UPTRAVI [Suspect]
     Active Substance: SELEXIPAG
     Dosage: 1200 MICROGRAM, TWO TIMES A DAY
     Route: 048
     Dates: start: 20250308
  11. UPTRAVI [Suspect]
     Active Substance: SELEXIPAG
     Dosage: 1400 MICROGRAM, TWO TIMES A DAY
     Route: 048
     Dates: start: 20250315
  12. UPTRAVI [Suspect]
     Active Substance: SELEXIPAG
     Dosage: 1600 MICROGRAM, TWO TIMES A DAY
     Route: 048
     Dates: start: 20250407
  13. UPTRAVI [Suspect]
     Active Substance: SELEXIPAG
     Dosage: 1400 MICROGRAM, TWO TIMES A DAY
     Route: 048
     Dates: start: 20250325
  14. UPTRAVI [Suspect]
     Active Substance: SELEXIPAG
     Dosage: 1600 MICROGRAM, TWO TIMES A DAY
     Route: 048
     Dates: start: 20250325
  15. UPTRAVI [Suspect]
     Active Substance: SELEXIPAG
     Dosage: 1200 MICROGRAM, ONCE A DAY(START DATE- 01-FEB-2025)
     Route: 048
     Dates: start: 20250215
  16. UPTRAVI [Suspect]
     Active Substance: SELEXIPAG
     Dosage: 1200 MICROGRAM, ONCE A DAY(START DATE- 15-FEB-2025)
     Route: 048
     Dates: start: 20250215
  17. UPTRAVI [Suspect]
     Active Substance: SELEXIPAG
     Dosage: 1600 MICROGRAM, ONCE A DAY(800 MICROGRAM, TWICE A DAY)
     Route: 048
     Dates: start: 20250222
  18. UPTRAVI [Suspect]
     Active Substance: SELEXIPAG
     Dosage: 2000 MICROGRAM, ONCE A DAY(1000 MICROGRAM, TWICE A DAY)
     Route: 048
     Dates: start: 20250102
  19. UPTRAVI [Suspect]
     Active Substance: SELEXIPAG
     Dosage: 2400 MICROGRAM, ONCE A DAY(1200 MICROGRAM, TWICE A DAY)
     Route: 048
     Dates: start: 20250102
  20. UPTRAVI [Suspect]
     Active Substance: SELEXIPAG
     Dosage: 2000 MICROGRAM, ONCE A DAY(1000 MICROGRAM, TWICE A DAY)
     Route: 048
     Dates: start: 20250301
  21. UPTRAVI [Suspect]
     Active Substance: SELEXIPAG
     Dosage: 2400 MICROGRAM, ONCE A DAY(1200 MICROGRAM, TWICE A DAY)
     Route: 048
     Dates: start: 20250308
  22. UPTRAVI [Suspect]
     Active Substance: SELEXIPAG
     Dosage: 2800 MICROGRAM, ONCE A DAY(1400 MICROGRAM, TWICE A DAY)
     Route: 048
     Dates: start: 20250315
  23. UPTRAVI [Suspect]
     Active Substance: SELEXIPAG
     Dosage: 2800 MICROGRAM, ONCE A DAY(1400 MICROGRAM, TWICE A DAY)
     Route: 048
     Dates: start: 20250102
  24. UPTRAVI [Suspect]
     Active Substance: SELEXIPAG
     Dosage: 3200 MICROGRAM, ONCE A DAY(1600 MICROGRAM, TWICE A DAY)
     Route: 048
     Dates: start: 20250325
  25. UPTRAVI [Suspect]
     Active Substance: SELEXIPAG
     Dosage: 2800 MICROGRAM, ONCE A DAY(1400 MICRO)
     Route: 048
     Dates: start: 20250325
  26. UPTRAVI [Suspect]
     Active Substance: SELEXIPAG
     Dosage: 3200 MICROGRAM, ONCE A DAY(1600 MICROGRAM, TWICE A DAY)
     Route: 048
     Dates: start: 20250404
  27. UPTRAVI [Suspect]
     Active Substance: SELEXIPAG
     Dosage: 2800 MICROGRAM, ONCE A DAY(1400 MICROGRAM, TWICE A DAY)
     Route: 048
     Dates: start: 20250413
  28. UPTRAVI [Suspect]
     Active Substance: SELEXIPAG
     Dosage: 1400 MICROGRAM, ONCE A DAY
     Route: 048
     Dates: start: 20250413
  29. UPTRAVI [Suspect]
     Active Substance: SELEXIPAG
     Dosage: 1400 MICROGRAM, ONCE A DAY
     Route: 048
     Dates: start: 20250412
  30. BOSENTAN [Concomitant]
     Active Substance: BOSENTAN
     Indication: Pulmonary arterial hypertension
     Dosage: UNK
     Route: 065
  31. TADALAFIL [Concomitant]
     Active Substance: TADALAFIL
     Indication: Pulmonary arterial hypertension
     Dosage: UNK
     Route: 065

REACTIONS (16)
  - Diarrhoea [Not Recovered/Not Resolved]
  - Right-to-left cardiac shunt [Unknown]
  - Fatigue [Recovered/Resolved]
  - Abdominal pain [Recovered/Resolved]
  - Oxygen saturation decreased [Recovered/Resolved]
  - Muscular weakness [Recovered/Resolved]
  - Frequent bowel movements [Not Recovered/Not Resolved]
  - Faeces soft [Not Recovered/Not Resolved]
  - Nasal congestion [Not Recovered/Not Resolved]
  - Diverticulum intestinal [Unknown]
  - Radiation proctitis [Unknown]
  - Dyspnoea [Recovering/Resolving]
  - Dyspepsia [Recovered/Resolved]
  - Haemorrhoid operation [Not Recovered/Not Resolved]
  - Discomfort [Recovered/Resolved]
  - Drug ineffective [Unknown]

NARRATIVE: CASE EVENT DATE: 20250301
